FAERS Safety Report 7671097-0 (Version None)
Quarter: 2011Q3

REPORT INFORMATION
  Report Type: 
  Country: None (occurrence: None)
  Receive Date: 20110809
  Receipt Date: 20110728
  Transmission Date: 20111222
  Serious: Yes (Other)
  Sender: FDA-Public Use
  Company Number: CA-JNJFOC-20110801017

PATIENT
  Weight: 80 kg

DRUGS (5)
  1. CYCLOBENZAPRINE [Concomitant]
  2. LIPITOR [Concomitant]
  3. REMICADE [Suspect]
     Route: 042
     Dates: start: 20100901
  4. REMICADE [Suspect]
     Indication: ANKYLOSING SPONDYLITIS
     Route: 042
     Dates: start: 20110602
  5. DICLOFENAC SODIUM [Concomitant]

REACTIONS (3)
  - HAEMOPTYSIS [None]
  - CHEST PAIN [None]
  - DYSGEUSIA [None]
